FAERS Safety Report 7058214-0 (Version None)
Quarter: 2010Q4

REPORT INFORMATION
  Report Type: 
  Country: None (occurrence: None)
  Receive Date: 20101022
  Receipt Date: 20101014
  Transmission Date: 20110411
  Serious: Yes (Life-Threatening)
  Sender: FDA-Public Use
  Company Number: DE-GILEAD-2010-0032705

PATIENT
  Sex: Female

DRUGS (9)
  1. RANEXA [Suspect]
     Indication: CORONARY ARTERY DISEASE
     Route: 048
     Dates: start: 20100614, end: 20100618
  2. ASS RATIOPHARM [Concomitant]
  3. CANDESARTAN CILEXETIL [Concomitant]
  4. FUROSEMIDE AL [Concomitant]
  5. ISOSORBIDE DINITRATE [Concomitant]
  6. METOPROLOL SUCCINATE [Concomitant]
  7. TARGIN [Concomitant]
  8. DIAZEPAM [Concomitant]
  9. MARCUMAR [Concomitant]

REACTIONS (2)
  - BRADYCARDIA [None]
  - CARDIAC FAILURE [None]
